FAERS Safety Report 9228124 (Version 2)
Quarter: 2013Q3

REPORT INFORMATION
  Report Type: Spontaneous
  Country: US (occurrence: US)
  Receive Date: 20130412
  Receipt Date: 20130906
  Transmission Date: 20140515
  Serious: Yes (Hospitalization, Other)
  Sender: FDA-Public Use
  Company Number: US-BAYER-2013-045616

PATIENT
  Age: 35 Year
  Sex: Female
  Weight: 85.71 kg

DRUGS (21)
  1. YASMIN [Suspect]
     Dosage: UNK
     Dates: start: 2006, end: 2007
  2. DEMEROL [Concomitant]
     Dosage: 50 MG, UNK
     Dates: start: 20061222
  3. DEMEROL [Concomitant]
     Dosage: 50 MG, UNK
     Dates: start: 20070105
  4. DIAZEPAM [Concomitant]
     Dosage: 5 MG, UNK
  5. LEVAQUIN [Concomitant]
     Dosage: 500 MG, UNK
  6. ALBUTEROL [Concomitant]
     Dosage: 90 MCG/ACT TWO PUFFS FOR TIMES DAILY
  7. DIFLUCAN [Concomitant]
     Dosage: 150 MG, UNK
     Dates: start: 20061018
  8. NYSTATIN [Concomitant]
     Dosage: UNK
     Dates: start: 20061018
  9. COLACE [Concomitant]
     Indication: CONSTIPATION
     Dosage: 100 MG, DAILY
     Dates: start: 20061130
  10. COLACE [Concomitant]
     Indication: CONSTIPATION
  11. NAPROXEN [Concomitant]
     Dosage: 375 MG, BID
     Dates: start: 20061130
  12. CLARITIN [Concomitant]
     Dosage: 10 MG, DAILY
     Dates: start: 20061130
  13. ENTEX PSE [Concomitant]
     Dosage: 120-400 MILLIGRAMS EVERY 12 HOURS DAILY
  14. MIDRIN [Concomitant]
     Indication: MIGRAINE
     Dosage: 325-65-100 MG TWO CAPSULES AT ONSET OF MIGRAINE
     Dates: start: 20061130
  15. RANITIDINE HYDROCHLORIDE [Concomitant]
     Dosage: 300 MG, DAILY
     Dates: start: 20061130
  16. SINGULAIR [Concomitant]
     Indication: MULTIPLE ALLERGIES
  17. ZYRTEC [Concomitant]
     Indication: MULTIPLE ALLERGIES
  18. MUCINEX [Concomitant]
     Indication: MULTIPLE ALLERGIES
  19. NASONEX [Concomitant]
     Indication: MULTIPLE ALLERGIES
     Dosage: 50 MCG DAILY
  20. PHENERGAN [Concomitant]
  21. MORPHIN [Concomitant]

REACTIONS (13)
  - Thrombosis [None]
  - Deep vein thrombosis [None]
  - Injury [None]
  - Pain [None]
  - Emotional distress [None]
  - Abdominal pain [None]
  - General physical health deterioration [None]
  - Anxiety [None]
  - Pain [None]
  - Pain [None]
  - Bundle branch block left [None]
  - Pelvic venous thrombosis [None]
  - Thrombophlebitis superficial [None]
